FAERS Safety Report 17923866 (Version 1)
Quarter: 2020Q2

REPORT INFORMATION
  Report Type: Spontaneous
  Country: US (occurrence: US)
  Receive Date: 20200622
  Receipt Date: 20200622
  Transmission Date: 20200714
  Serious: Yes (Disabling)
  Sender: FDA-Public Use
  Company Number: None

PATIENT
  Age: 83 Year
  Sex: Male
  Weight: 94.5 kg

DRUGS (8)
  1. SIMVASTATIN. [Concomitant]
     Active Substance: SIMVASTATIN
  2. FAMOTIDINE. [Concomitant]
     Active Substance: FAMOTIDINE
  3. DILTIAZEM 180MG ER [Suspect]
     Active Substance: DILTIAZEM
     Indication: ATRIAL FIBRILLATION
     Dosage: ?          QUANTITY:1 CAPSULE(S);?
     Route: 048
     Dates: start: 20200614
  4. VITAMIN D3 [Concomitant]
     Active Substance: CHOLECALCIFEROL
  5. PROBIOTIC [Concomitant]
     Active Substance: PROBIOTICS NOS
  6. DILTIAZEM 180MG ER [Suspect]
     Active Substance: DILTIAZEM
     Indication: HYPERTENSION
     Dosage: ?          QUANTITY:1 CAPSULE(S);?
     Route: 048
     Dates: start: 20200614
  7. CARTIA [Concomitant]
  8. BRILINTA [Concomitant]
     Active Substance: TICAGRELOR

REACTIONS (3)
  - Product substitution issue [None]
  - Adverse drug reaction [None]
  - Overdose [None]

NARRATIVE: CASE EVENT DATE: 20200614
